FAERS Safety Report 7277765-7 (Version None)
Quarter: 2011Q1

REPORT INFORMATION
  Report Type: 
  Country: None (occurrence: None)
  Receive Date: 20110207
  Receipt Date: 20100430
  Transmission Date: 20110831
  Serious: No
  Sender: FDA-Public Use
  Company Number: A0847505A

PATIENT
  Age: 57 Year
  Sex: Female

DRUGS (5)
  1. ZANTAC [Concomitant]
  2. ACYCLOVIR [Concomitant]
  3. FLUOXETINE [Concomitant]
  4. OLUX E [Suspect]
     Route: 061
     Dates: start: 20100225, end: 20100225
  5. BONIVA [Concomitant]

REACTIONS (1)
  - HAIR DISORDER [None]
